FAERS Safety Report 5491678-2 (Version None)
Quarter: 2007Q4

REPORT INFORMATION
  Report Type: 
  Country: None (occurrence: None)
  Receive Date: 20071022
  Receipt Date: 20071022
  Transmission Date: 20080405
  Serious: Yes (Death, Other)
  Sender: FDA-Public Use
  Company Number: SG-BAYER-200716130GDS

PATIENT
  Age: 48 Year
  Sex: Male
  Weight: 55 kg

DRUGS (7)
  1. SORAFENIB [Suspect]
     Indication: NON-SMALL CELL LUNG CANCER
     Dosage: TOTAL DAILY DOSE: 800 MG
     Route: 048
     Dates: start: 20071003, end: 20071013
  2. CARBOPLATIN [Suspect]
     Indication: NON-SMALL CELL LUNG CANCER
     Route: 042
     Dates: start: 20071002, end: 20071002
  3. PACLITAXEL [Suspect]
     Indication: NON-SMALL CELL LUNG CANCER
     Dates: start: 20071002, end: 20071002
  4. MORPHINE [Concomitant]
     Indication: PAIN
     Route: 048
     Dates: start: 20070827
  5. CELEBREX [Concomitant]
     Indication: PAIN
     Route: 048
     Dates: start: 20070821
  6. SENNA [Concomitant]
     Indication: CONSTIPATION
     Route: 048
     Dates: start: 20070827
  7. LACTULOSE [Concomitant]
     Indication: CONSTIPATION
     Route: 048
     Dates: start: 20070827

REACTIONS (9)
  - CHEST PAIN [None]
  - DEATH [None]
  - DRUG DOSE OMISSION [None]
  - DYSPNOEA [None]
  - FEELING HOT [None]
  - HEADACHE [None]
  - RASH [None]
  - THIRST [None]
  - VOMITING [None]
